FAERS Safety Report 22267282 (Version 9)
Quarter: 2025Q2

REPORT INFORMATION
  Report Type: Spontaneous
  Country: US (occurrence: US)
  Receive Date: 20230428
  Receipt Date: 20250610
  Transmission Date: 20250717
  Serious: No
  Sender: PFIZER
  Company Number: US-PFIZER INC-PV202300075575

PATIENT
  Age: 78 Year
  Sex: Female
  Weight: 62.3 kg

DRUGS (2)
  1. IBRANCE [Suspect]
     Active Substance: PALBOCICLIB
     Indication: Breast cancer female
     Route: 048
     Dates: start: 2017
  2. FEMARA [Concomitant]
     Active Substance: LETROZOLE
     Indication: Breast cancer female
     Dates: start: 2012

REACTIONS (2)
  - Illness [Recovered/Resolved]
  - Impaired healing [Unknown]

NARRATIVE: CASE EVENT DATE: 20200101
